FAERS Safety Report 11673548 (Version 3)
Quarter: 2015Q4

REPORT INFORMATION
  Report Type: Spontaneous
  Country: JP (occurrence: JP)
  Receive Date: 20151028
  Receipt Date: 20151104
  Transmission Date: 20160304
  Serious: Yes (Death, Other)
  Sender: FDA-Public Use
  Company Number: PHJP2015JP018586

PATIENT
  Age: 72 Year
  Sex: Female

DRUGS (4)
  1. LETROZOLE. [Suspect]
     Active Substance: LETROZOLE
     Indication: BREAST CANCER RECURRENT
     Dosage: UNK
     Route: 048
     Dates: start: 201404
  2. ANASTROZOLE. [Suspect]
     Active Substance: ANASTROZOLE
     Indication: BREAST CANCER RECURRENT
     Dosage: UNK
     Route: 048
  3. TAMOXIFEN [Suspect]
     Active Substance: TAMOXIFEN
     Indication: BREAST CANCER RECURRENT
     Route: 065
  4. EXEMESTANE. [Suspect]
     Active Substance: EXEMESTANE
     Indication: BREAST CANCER RECURRENT
     Dosage: UNK
     Route: 048

REACTIONS (9)
  - Haemorrhage subcutaneous [Unknown]
  - Condition aggravated [Fatal]
  - Nasopharyngitis [Unknown]
  - Interstitial lung disease [Fatal]
  - Metastases to chest wall [Unknown]
  - Carcinoembryonic antigen increased [Fatal]
  - Pneumonia aspiration [Fatal]
  - Dyspnoea [Fatal]
  - Metastases to lymph nodes [Unknown]

NARRATIVE: CASE EVENT DATE: 201501
